FAERS Safety Report 15697775 (Version 1)
Quarter: 2018Q4

REPORT INFORMATION
  Report Type: Spontaneous
  Country: CH (occurrence: CH)
  Receive Date: 20181207
  Receipt Date: 20181207
  Transmission Date: 20190205
  Serious: Yes (Death)
  Sender: FDA-Public Use
  Company Number: CH-ROCHE-2222322

PATIENT
  Age: 78 Year
  Sex: Female
  Weight: 66 kg

DRUGS (9)
  1. PERJETA [Interacting]
     Active Substance: PERTUZUMAB
     Indication: PRODUCT USED FOR UNKNOWN INDICATION
     Dosage: ON 18/OCT/2018, RECEIVED MOST RECENT DOSE OF PERTUZUMAB
     Route: 041
     Dates: start: 20180905
  2. CYCLOPHOSPHAMIDE. [Concomitant]
     Active Substance: CYCLOPHOSPHAMIDE
     Dosage: 600 MG/M2 EVERY 14 DAYS
     Route: 065
  3. BACTRIM [Concomitant]
     Active Substance: SULFAMETHOXAZOLE\TRIMETHOPRIM
     Route: 065
     Dates: start: 20181103
  4. XARELTO [Concomitant]
     Active Substance: RIVAROXABAN
     Indication: FACTOR V LEIDEN MUTATION
     Route: 048
     Dates: end: 20181108
  5. SERTRALINE [Concomitant]
     Active Substance: SERTRALINE HYDROCHLORIDE
     Route: 048
     Dates: end: 201811
  6. TAZOBAC [Concomitant]
     Active Substance: PIPERACILLIN SODIUM\TAZOBACTAM SODIUM
  7. HERCEPTIN [Suspect]
     Active Substance: TRASTUZUMAB
     Indication: PRODUCT USED FOR UNKNOWN INDICATION
     Dosage: ON 18/OCT/2018, RECEIVED MOST RECENT DOSE OF TRASTUZUMAB
     Route: 065
     Dates: start: 20180905
  8. PACLITAXEL. [Interacting]
     Active Substance: PACLITAXEL
     Indication: PRODUCT USED FOR UNKNOWN INDICATION
     Dosage: ON 18/OCT/2018, RECEIVED MOST RECENT DOSE OF PACLITAXEL
     Route: 041
     Dates: start: 20180905
  9. DOXORUBICIN [Concomitant]
     Active Substance: DOXORUBICIN
     Route: 041
     Dates: start: 20180718, end: 20180905

REACTIONS (2)
  - Pneumonitis chemical [Fatal]
  - Drug interaction [Fatal]

NARRATIVE: CASE EVENT DATE: 20181101
